FAERS Safety Report 5413233-2 (Version None)
Quarter: 2007Q3

REPORT INFORMATION
  Report Type: 
  Country: None (occurrence: None)
  Receive Date: 20070814
  Receipt Date: 20070807
  Transmission Date: 20080115
  Serious: Yes (Other)
  Sender: FDA-Public Use
  Company Number: PHBS2007BR13126

PATIENT
  Age: 23 Year
  Sex: Female

DRUGS (2)
  1. METHERGINE [Suspect]
     Indication: INTENTIONAL OVERDOSE
     Dosage: 1.875 MG, ONCE/SINGLE
     Route: 048
     Dates: start: 20070806, end: 20070806
  2. BUSCOPAN [Concomitant]
     Indication: HEADACHE
     Dosage: 30 DRP, QD
     Route: 048
     Dates: start: 20070806

REACTIONS (4)
  - ABDOMINAL PAIN [None]
  - DRUG EXPOSURE DURING PREGNANCY [None]
  - INTENTIONAL OVERDOSE [None]
  - THREATENED LABOUR [None]
